FAERS Safety Report 5095609-9 (Version None)
Quarter: 2006Q3

REPORT INFORMATION
  Report Type: 
  Country: None (occurrence: None)
  Receive Date: 20060901
  Receipt Date: 20051026
  Transmission Date: 20061208
  Serious: Yes (Hospitalization, Disabling)
  Sender: FDA-Public Use
  Company Number: JP-MERCK-0511USA00364

PATIENT
  Age: 85 Year
  Sex: Female

DRUGS (8)
  1. PEPCID RPD [Suspect]
     Route: 048
     Dates: start: 20050808, end: 20051018
  2. BASEN [Concomitant]
     Route: 048
  3. NORVASC [Concomitant]
     Route: 048
  4. ADETPHOS [Concomitant]
     Route: 048
  5. MUCOSTA [Concomitant]
     Route: 048
  6. LENDORMIN [Concomitant]
     Route: 048
  7. DEPAS [Concomitant]
     Route: 048
  8. BLOPRESS [Concomitant]
     Route: 048

REACTIONS (3)
  - ABDOMINAL PAIN UPPER [None]
  - RENAL FAILURE [None]
  - RHABDOMYOLYSIS [None]
